FAERS Safety Report 8534412-1 (Version None)
Quarter: 2012Q3

REPORT INFORMATION
  Report Type: 
  Country: None (occurrence: None)
  Receive Date: 20120724
  Receipt Date: 20120720
  Transmission Date: 20120928
  Serious: Yes (Hospitalization)
  Sender: FDA-Public Use
  Company Number: PHHY2012JP062703

PATIENT
  Age: 89 Year
  Sex: Female

DRUGS (13)
  1. DISOPYRAMIDE PHOSPHATE [Interacting]
     Dosage: 300 MG, QD
     Route: 048
     Dates: end: 20120125
  2. FAMOTIDINE [Concomitant]
     Dosage: UNK
     Dates: start: 20120125
  3. CANDESARTAN CILEXETIL [Concomitant]
     Dosage: UNK
     Dates: start: 20120125
  4. FEREDAIM [Concomitant]
     Dosage: UNK
     Dates: start: 20120125
  5. BENZBROMARONE [Concomitant]
     Dosage: UNK
     Dates: start: 20120125
  6. MAGMITT [Concomitant]
     Dosage: UNK
     Dates: start: 20120125
  7. SELPHAMIN [Concomitant]
     Dosage: UNK
     Dates: start: 20120125
  8. ACETAMINOPHEN [Concomitant]
     Dosage: UNK
     Dates: start: 20120120, end: 20120124
  9. PRORENAL [Concomitant]
     Dosage: UNK
     Dates: start: 20120125
  10. LACALMIN [Concomitant]
     Dosage: UNK
     Dates: start: 20120125
  11. CLARITHROMYCIN [Suspect]
     Indication: NASOPHARYNGITIS
     Dosage: 400 MG, QD
     Route: 048
     Dates: start: 20120120, end: 20120124
  12. FUROSEMIDE [Concomitant]
     Dosage: UNK
     Dates: start: 20120125
  13. NIFELAT [Concomitant]
     Dosage: UNK
     Dates: start: 20120125

REACTIONS (3)
  - HEMIPARESIS [None]
  - DRUG INTERACTION [None]
  - HYPOGLYCAEMIC COMA [None]
